FAERS Safety Report 9710756 (Version 2)
Quarter: 2013Q4

REPORT INFORMATION
  Report Type: Spontaneous
  Country: US (occurrence: US)
  Receive Date: 20131126
  Receipt Date: 20131126
  Transmission Date: 20140711
  Serious: No
  Sender: FDA-Public Use
  Company Number: US-BRISTOL-MYERS SQUIBB COMPANY-18978486

PATIENT
  Age: 67 Year
  Sex: Male
  Weight: 145.12 kg

DRUGS (9)
  1. BYETTA PEN DISPOSABLE [Suspect]
     Indication: TYPE 2 DIABETES MELLITUS
     Dosage: DOSE INCREASED:10 MCG
     Route: 058
  2. METFORMIN HCL [Suspect]
  3. ACTOS [Suspect]
  4. PRAVASTATIN SODIUM [Concomitant]
  5. DIGOXIN [Concomitant]
  6. WARFARIN SODIUM [Concomitant]
  7. FUROSEMIDE [Concomitant]
  8. MELOXICAM [Concomitant]
  9. NORCO [Concomitant]

REACTIONS (1)
  - Blood glucose increased [Not Recovered/Not Resolved]
